FAERS Safety Report 6784816-2 (Version None)
Quarter: 2010Q2

REPORT INFORMATION
  Report Type: 
  Country: None (occurrence: None)
  Receive Date: 20100622
  Receipt Date: 20100614
  Transmission Date: 20101027
  Serious: Yes (Hospitalization)
  Sender: FDA-Public Use
  Company Number: US-AMGEN-QUU418111

PATIENT
  Sex: Female

DRUGS (3)
  1. NEULASTA [Suspect]
     Indication: CHEMOTHERAPY
     Dates: start: 20100612
  2. TAXOTERE [Concomitant]
  3. CYTOXAN [Concomitant]

REACTIONS (10)
  - ABDOMINAL PAIN [None]
  - BONE PAIN [None]
  - DYSPNOEA [None]
  - HYPOKALAEMIA [None]
  - LEUKOCYTOSIS [None]
  - MUSCULAR WEAKNESS [None]
  - NAUSEA [None]
  - PAIN [None]
  - SENSATION OF HEAVINESS [None]
  - VOMITING [None]
